FAERS Safety Report 23431577 (Version 1)
Quarter: 2024Q1

REPORT INFORMATION
  Report Type: Spontaneous
  Country: IT (occurrence: IT)
  Receive Date: 20240123
  Receipt Date: 20240123
  Transmission Date: 20240409
  Serious: Yes (Death)
  Sender: FDA-Public Use
  Company Number: None

PATIENT
  Age: 70 Year
  Sex: Female
  Weight: 58 kg

DRUGS (4)
  1. VALGANCICLOVIR [Interacting]
     Active Substance: VALGANCICLOVIR
     Indication: Cytomegalovirus infection
     Dosage: 900 MG X 2 /DAY
     Route: 048
     Dates: start: 20230919, end: 20230927
  2. POMALIDOMIDE [Suspect]
     Active Substance: POMALIDOMIDE
     Indication: Plasma cell myeloma refractory
     Dosage: THIRD-LINE THERAPY ISAPOMDEX, CYCLE 14?DAILY DOSE: MILLIGRAM
     Route: 048
     Dates: start: 20220901, end: 20230927
  3. DEXAMETHASONE [Suspect]
     Active Substance: DEXAMETHASONE
     Dosage: THIRD-LINE THERAPY ISAPOMDEX, CYCLE 14
     Route: 048
     Dates: start: 20220901, end: 20230927
  4. ISATUXIMAB [Suspect]
     Active Substance: ISATUXIMAB
     Indication: Plasma cell myeloma refractory
     Dosage: 590 MG EVERY 2 WEEKS, THIRD-LINE THERAPY ISAPOMDEX, 14TH CYCLE
     Route: 042
     Dates: start: 20220901, end: 20230927

REACTIONS (6)
  - Cardio-respiratory arrest [Fatal]
  - Acute kidney injury [Fatal]
  - Neutropenia [Fatal]
  - Multiple organ dysfunction syndrome [Fatal]
  - Bacterial sepsis [Fatal]
  - Off label use [Recovered/Resolved]

NARRATIVE: CASE EVENT DATE: 20230801
